FAERS Safety Report 12446210 (Version 1)
Quarter: 2016Q2

REPORT INFORMATION
  Report Type: Spontaneous
  Country: US (occurrence: None)
  Receive Date: 20160607
  Receipt Date: 20160607
  Transmission Date: 20160815
  Serious: No
  Sender: FDA-Public Use
  Company Number: None

PATIENT
  Age: 62 Year
  Sex: Female

DRUGS (1)
  1. RIBAVARIN [Suspect]
     Active Substance: RIBAVIRIN
     Indication: HEPATITIS C
     Route: 048
     Dates: start: 20160509

REACTIONS (4)
  - Rash [None]
  - Fatigue [None]
  - Anaemia [None]
  - Toxicity to various agents [None]

NARRATIVE: CASE EVENT DATE: 20160515
